FAERS Safety Report 7420575-8 (Version None)
Quarter: 2011Q2

REPORT INFORMATION
  Report Type: 
  Country: None (occurrence: None)
  Receive Date: 20110418
  Receipt Date: 20110413
  Transmission Date: 20111010
  Serious: No
  Sender: FDA-Public Use
  Company Number: US-PFIZER INC-2011081683

PATIENT
  Sex: Male
  Weight: 72.562 kg

DRUGS (2)
  1. PRISTIQ [Suspect]
     Indication: DEPRESSION
     Dosage: 100 MG, 1X/DAY
     Dates: start: 20100101
  2. XANAX [Concomitant]
     Indication: SUPPLEMENTATION THERAPY
     Dosage: 2 MG, AS NEEDED

REACTIONS (2)
  - EXPIRED DRUG ADMINISTERED [None]
  - DIZZINESS [None]
